FAERS Safety Report 7005025-8 (Version None)
Quarter: 2010Q3

REPORT INFORMATION
  Report Type: 
  Country: None (occurrence: None)
  Receive Date: 20100920
  Receipt Date: 20100920
  Transmission Date: 20110219
  Serious: Yes (Hospitalization)
  Sender: FDA-Public Use
  Company Number: None

PATIENT
  Age: 33 Year
  Sex: Female
  Weight: 95.25 kg

DRUGS (1)
  1. ZOLMITRIPTAN [Suspect]
     Indication: MIGRAINE
     Dosage: 2.5 MG PRN PO
     Route: 048
     Dates: start: 20090903, end: 20090917

REACTIONS (2)
  - LIP SWELLING [None]
  - SWELLING FACE [None]
